FAERS Safety Report 11290641 (Version 1)
Quarter: 2015Q3

REPORT INFORMATION
  Report Type: Spontaneous
  Country: US (occurrence: None)
  Receive Date: 20150720
  Receipt Date: 20150720
  Transmission Date: 20151125
  Serious: No
  Sender: FDA-Public Use
  Company Number: None

PATIENT
  Age: 66 Year
  Sex: Male

DRUGS (1)
  1. NEXAVAR [Suspect]
     Active Substance: SORAFENIB
     Indication: HEPATIC CANCER
     Route: 048
     Dates: start: 20150321, end: 20150520

REACTIONS (3)
  - Renal disorder [None]
  - Pancreatic disorder [None]
  - Hypertension [None]

NARRATIVE: CASE EVENT DATE: 201505
